FAERS Safety Report 5804695-7 (Version None)
Quarter: 2008Q3

REPORT INFORMATION
  Report Type: 
  Country: None (occurrence: None)
  Receive Date: 20080709
  Receipt Date: 20080707
  Transmission Date: 20090109
  Serious: Yes (Other)
  Sender: FDA-Public Use
  Company Number: US-MERCK-0804USA03242

PATIENT
  Age: 87 Year
  Sex: Female

DRUGS (4)
  1. COZAAR [Suspect]
     Indication: BLOOD PRESSURE
     Route: 048
  2. COZAAR [Suspect]
     Route: 048
  3. NEXIUM [Suspect]
     Route: 065
  4. [THERAPY UNSPECIFIED] [Concomitant]
     Route: 065

REACTIONS (5)
  - DRUG INEFFECTIVE [None]
  - GALLBLADDER DISORDER [None]
  - HYPERTENSION [None]
  - MUSCULOSKELETAL PAIN [None]
  - PEPTIC ULCER [None]
